FAERS Safety Report 23086327 (Version 1)
Quarter: 2023Q4

REPORT INFORMATION
  Report Type: Spontaneous
  Country: IT (occurrence: IT)
  Receive Date: 20231019
  Receipt Date: 20231019
  Transmission Date: 20240109
  Serious: Yes (Other)
  Sender: FDA-Public Use
  Company Number: None

PATIENT
  Age: 53 Year
  Sex: Male
  Weight: 58 kg

DRUGS (3)
  1. PEMBROLIZUMAB [Suspect]
     Active Substance: PEMBROLIZUMAB
     Indication: Lung neoplasm malignant
     Dosage: APPLIED THERAPEUTIC SCHEME CARBOLPATINO AUC 6, NAB-PACLITAXEL 100MG/M2, PEMBROLIZUMAB 200 MG
     Route: 042
     Dates: start: 20230615, end: 20230615
  2. PACLITAXEL [Suspect]
     Active Substance: PACLITAXEL
     Indication: Lung neoplasm malignant
     Dosage: APPLIED THERAPEUTIC SCHEME CARBOLPATINO AUC 6, NAB-PACLITAXEL 100MG/M2, PEMBROLIZUMAB 200 MG
     Route: 042
     Dates: start: 20230615, end: 20230615
  3. CARBOPLATIN [Suspect]
     Active Substance: CARBOPLATIN
     Indication: Lung neoplasm malignant
     Dosage: APPLIED THERAPEUTIC SCHEME CARBOLPATINO AUC 6, NAB-PACLITAXEL 100MG/M2, PEMBROLIZUMAB 200 MG
     Route: 042
     Dates: start: 20230615, end: 20230615

REACTIONS (1)
  - Neutropenia [Recovering/Resolving]

NARRATIVE: CASE EVENT DATE: 20230715
